FAERS Safety Report 8481345 (Version 4)
Quarter: 2012Q4

REPORT INFORMATION
  Report Type: Spontaneous
  Country: None (occurrence: None)
  Receive Date: 20120321
  Receipt Date: 20120823
  Transmission Date: 20130627
  Serious: Yes (Other)
  Sender: FDA-Public Use
  Company Number: AUR-APL-2012-01379

PATIENT
  Age: 65 Year
  Sex: Male
  Weight: 86 kg

DRUGS (9)
  1. SIMVASTATIN [Suspect]
     Indication: BLOOD CHOLESTEROL INCREASED
     Dosage: 1 DOSAGE FORMS (1 DOSAGE FORMS,1 IN 1 D),ORAL
     Route: 048
     Dates: start: 20111212, end: 20120203
  2. CLOPIDOGREL [Concomitant]
  3. ISOSORBIDE MONONITRATE [Concomitant]
  4. LEVEMIR [Concomitant]
  5. LEVOTHYROXINE SODIUM [Concomitant]
  6. NCOORANDIL (NICORANDIL) [Concomitant]
  7. NOVOLOG [Concomitant]
  8. PRILOSEC [Concomitant]
  9. TILIDIEM LA (DILTIAZEM HYDROCHLORIDE) [Concomitant]

REACTIONS (2)
  - PAIN IN EXTREMITY [None]
  - MYALGIA [None]
